FAERS Safety Report 8047894 (Version 7)
Quarter: 2013Q3

REPORT INFORMATION
  Report Type: Spontaneous
  Country: US (occurrence: US)
  Receive Date: 20110721
  Receipt Date: 20130725
  Transmission Date: 20140515
  Serious: Yes (Hospitalization, Congenital Anomaly, Other)
  Sender: FDA-Public Use
  Company Number: US-PFIZER INC-2011160621

PATIENT
  Sex: Male
  Weight: 3.4 kg

DRUGS (17)
  1. ZOLOFT [Suspect]
     Indication: ANXIETY
     Dosage: UNK
     Route: 064
     Dates: start: 200903
  2. ZOLOFT [Suspect]
     Indication: DEPRESSION
     Dosage: 50 MG, HALF EVERY DAY
     Route: 064
     Dates: start: 20091022
  3. ZOLOFT [Suspect]
     Dosage: UNK
     Route: 064
     Dates: start: 200912, end: 20100226
  4. ZOLOFT [Suspect]
     Dosage: UNK
     Route: 064
     Dates: start: 2009, end: 2010
  5. SERTRALINE HCL [Suspect]
     Dosage: UNK
     Route: 064
     Dates: start: 200903
  6. SERTRALINE HCL [Suspect]
     Dosage: UNK
     Route: 064
     Dates: start: 2009, end: 2010
  7. KLONOPIN [Concomitant]
     Indication: ANXIETY
     Dosage: 0.5 MG, 1X/DAY
     Route: 064
  8. PRENATAL VITAMINS [Concomitant]
     Dosage: UNK
     Route: 064
     Dates: start: 20101002
  9. CLONAZEPAM [Concomitant]
     Dosage: UNK
     Route: 064
  10. TYLENOL [Concomitant]
     Dosage: UNK
     Route: 064
  11. ATIVAN [Concomitant]
     Dosage: UNK
     Route: 064
  12. TYLENOL PM [Concomitant]
     Route: 064
  13. HERBAL VITAMIN [Concomitant]
     Dosage: UNK
     Route: 064
  14. PRENATE ELITE [Concomitant]
     Dosage: UNK
     Route: 064
  15. KEFLEX [Concomitant]
     Dosage: UNK
     Route: 064
  16. CLARITIN [Concomitant]
     Dosage: UNK
     Route: 064
  17. ZYRTEC [Concomitant]
     Dosage: UNK
     Route: 064

REACTIONS (23)
  - Foetal exposure during pregnancy [Unknown]
  - Fallot^s tetralogy [Unknown]
  - Patent ductus arteriosus [Unknown]
  - Right ventricle outflow tract obstruction [Unknown]
  - Congenital arterial malformation [Unknown]
  - Atrial septal defect [Unknown]
  - Dacryostenosis congenital [Unknown]
  - Tricuspid valve incompetence [Unknown]
  - Developmental hip dysplasia [Unknown]
  - Pulmonary artery stenosis congenital [Unknown]
  - Right aortic arch [Unknown]
  - Congenital skin dimples [Unknown]
  - Cardiac murmur [Unknown]
  - Pulmonary vascular disorder [Unknown]
  - Immune system disorder [Unknown]
  - Developmental delay [Unknown]
  - Congenital anomaly [Unknown]
  - Pulmonary oedema [Unknown]
  - Laevocardia [Unknown]
  - Atelectasis [Unknown]
  - Hypoxia [Unknown]
  - Pulmonary valve incompetence [Unknown]
  - Gait disturbance [Unknown]
